FAERS Safety Report 26112230 (Version 1)
Quarter: 2025Q4

REPORT INFORMATION
  Report Type: Spontaneous
  Country: EU (occurrence: EU)
  Receive Date: 20251202
  Receipt Date: 20251202
  Transmission Date: 20260118
  Serious: Yes (Death)
  Sender: JOHNSON AND JOHNSON
  Company Number: EU-JNJFOC-20251200166

PATIENT
  Sex: Female
  Weight: 56 kg

DRUGS (1)
  1. TECVAYLI [Suspect]
     Active Substance: TECLISTAMAB-CQYV
     Indication: Plasma cell myeloma
     Dosage: DATE OF FINAL CESSATION OF TREATMENT: 16-MAY-2025
     Route: 065
     Dates: start: 20250225

REACTIONS (1)
  - Death [Fatal]
